FAERS Safety Report 9436046 (Version 1)
Quarter: 2013Q3

REPORT INFORMATION
  Report Type: Spontaneous
  Country: FR (occurrence: US)
  Receive Date: 20130801
  Receipt Date: 20130801
  Transmission Date: 20140515
  Serious: Yes (Hospitalization)
  Sender: FDA-Public Use
  Company Number: US-FRI-1000047322

PATIENT
  Age: 57 Year
  Sex: Female

DRUGS (16)
  1. MILNACIPRAN [Suspect]
     Indication: FIBROMYALGIA
     Dosage: 12.5 MG
  2. MILNACIPRAN [Suspect]
     Dosage: 25 MG
  3. MILNACIPRAN [Suspect]
     Dosage: 50 MG
  4. MILNACIPRAN [Suspect]
     Indication: FIBROMYALGIA
     Dosage: 100 MG
  5. FLUOXETINE [Concomitant]
  6. ALPRAZOLAM [Concomitant]
  7. ZOLPIDEM [Concomitant]
  8. ZOLEDRONIC ACID [Concomitant]
  9. ANASTROZOLE [Concomitant]
  10. DOXEPIN [Concomitant]
  11. RANITIDINE [Concomitant]
  12. LEVOCETIRIZINE [Concomitant]
  13. DOXAZOSIN [Concomitant]
  14. TRAMADOL [Concomitant]
  15. VITAMIN D [Concomitant]
  16. FERROUS GLUCONATE [Concomitant]

REACTIONS (2)
  - Serotonin syndrome [Recovered/Resolved]
  - Rash morbilliform [Recovered/Resolved]
